FAERS Safety Report 9190902 (Version 2)
Quarter: 2013Q2

REPORT INFORMATION
  Report Type: Report from Study
  Country: CA (occurrence: CA)
  Receive Date: 20130326
  Receipt Date: 20130403
  Transmission Date: 20140414
  Serious: Yes (Other)
  Sender: FDA-Public Use
  Company Number: CA-ROCHE-1205047

PATIENT
  Sex: Male
  Weight: 90.7 kg

DRUGS (7)
  1. RITUXAN [Suspect]
     Indication: RHEUMATOID ARTHRITIS
     Route: 042
     Dates: start: 20120815
  2. METHOTREXATE [Suspect]
     Indication: PRODUCT USED FOR UNKNOWN INDICATION
     Route: 065
  3. DIPHENHYDRAMINE HCL [Concomitant]
     Route: 048
     Dates: start: 20120815
  4. ACETAMINOPHEN [Concomitant]
     Route: 048
     Dates: start: 20120815
  5. METHYLPREDNISOLONE [Concomitant]
     Route: 042
     Dates: start: 20120815
  6. PREDNISONE [Concomitant]
     Dosage: AS REQUIRED
     Route: 065
  7. FOLIC ACID [Concomitant]

REACTIONS (1)
  - Nodule [Not Recovered/Not Resolved]
